FAERS Safety Report 6140684-3 (Version None)
Quarter: 2009Q2

REPORT INFORMATION
  Report Type: 
  Country: None (occurrence: None)
  Receive Date: 20090402
  Receipt Date: 20090326
  Transmission Date: 20091009
  Serious: Yes (Hospitalization)
  Sender: FDA-Public Use
  Company Number: US-BIOGENIDEC-2009BI003602

PATIENT
  Age: 49 Year
  Sex: Female
  Weight: 77 kg

DRUGS (4)
  1. TYSABRI [Suspect]
     Indication: MULTIPLE SCLEROSIS
     Route: 042
     Dates: start: 20080611
  2. FIORICET [Concomitant]
     Indication: MIGRAINE
  3. PERCOCET [Concomitant]
     Indication: MIGRAINE
  4. PHENERGAN [Concomitant]
     Indication: NAUSEA

REACTIONS (6)
  - ASTHENIA [None]
  - FATIGUE [None]
  - MEMORY IMPAIRMENT [None]
  - MIGRAINE [None]
  - SCIATICA [None]
  - SNORING [None]
